FAERS Safety Report 6386430-X (Version None)
Quarter: 2009Q4

REPORT INFORMATION
  Report Type: 
  Country: None (occurrence: None)
  Receive Date: 20091002
  Receipt Date: 20090922
  Transmission Date: 20100525
  Serious: Yes (Other)
  Sender: FDA-Public Use
  Company Number: BR-JNJFOC-20090907242

PATIENT
  Age: 27 Year
  Sex: Female
  Weight: 52 kg

DRUGS (1)
  1. ORTHO EVRA [Suspect]
     Indication: CONTRACEPTION
     Route: 062

REACTIONS (8)
  - ANXIETY [None]
  - BREAST PAIN [None]
  - CHEST PAIN [None]
  - DYSPEPSIA [None]
  - DYSPNOEA [None]
  - METRORRHAGIA [None]
  - PHARYNGITIS [None]
  - VAGINAL HAEMORRHAGE [None]
